FAERS Safety Report 14658875 (Version 1)
Quarter: 2018Q1

REPORT INFORMATION
  Report Type: Spontaneous
  Country: US (occurrence: US)
  Receive Date: 20180320
  Receipt Date: 20180320
  Transmission Date: 20180509
  Serious: No
  Sender: FDA-Public Use
  Company Number: US-009507513-1803USA002210

PATIENT
  Age: 39 Year
  Sex: Female

DRUGS (7)
  1. MINIVELLE [Concomitant]
     Active Substance: ESTRADIOL
  2. DOXY [Concomitant]
     Active Substance: DOXYCYCLINE
  3. DELESTROGEN [Concomitant]
     Active Substance: ESTRADIOL VALERATE
  4. LEUPROLIDE [Concomitant]
     Active Substance: LEUPROLIDE
  5. ESTRADIOL. [Concomitant]
     Active Substance: ESTRADIOL
  6. FOLLISTIM AQ [Suspect]
     Active Substance: FOLLITROPIN
     Dosage: 300 IU, QPM
     Route: 058
     Dates: start: 20180224
  7. GANIRELIX ACETATE INJECTION [Concomitant]
     Active Substance: GANIRELIX ACETATE
     Dosage: 300 IU, EVERY NIGHT

REACTIONS (2)
  - Nausea [Unknown]
  - Headache [Unknown]

NARRATIVE: CASE EVENT DATE: 2018
